FAERS Safety Report 23508937 (Version 1)
Quarter: 2024Q1

REPORT INFORMATION
  Report Type: Report from Study
  Country: CA (occurrence: CA)
  Receive Date: 20240209
  Receipt Date: 20240209
  Transmission Date: 20240410
  Serious: Yes (Death, Hospitalization)
  Sender: FDA-Public Use
  Company Number: CA-ABBVIE-5631416

PATIENT
  Age: 94 Year
  Sex: Male

DRUGS (1)
  1. LUPRON [Suspect]
     Active Substance: LEUPROLIDE ACETATE
     Indication: Prostate cancer
     Route: 030
     Dates: start: 20180503, end: 20231021

REACTIONS (3)
  - Fall [Fatal]
  - Pain [Fatal]
  - Hip fracture [Fatal]

NARRATIVE: CASE EVENT DATE: 20230101
